FAERS Safety Report 6456963-6 (Version None)
Quarter: 2009Q4

REPORT INFORMATION
  Report Type: 
  Country: None (occurrence: None)
  Receive Date: 20091125
  Receipt Date: 20091118
  Transmission Date: 20100525
  Serious: Yes (Other)
  Sender: FDA-Public Use
  Company Number: BR-PFIZER INC-2009285574

PATIENT
  Age: 18 Year
  Sex: Male

DRUGS (2)
  1. GENOTROPIN [Suspect]
     Indication: OFF LABEL USE
     Dosage: 2 MG, 1X/DAY
     Route: 058
     Dates: start: 20091009
  2. GENOTROPIN [Suspect]
     Indication: UNDERWEIGHT

REACTIONS (1)
  - CONVULSION [None]
